FAERS Safety Report 15462352 (Version 1)
Quarter: 2018Q4

REPORT INFORMATION
  Report Type: Spontaneous
  Country: US (occurrence: US)
  Receive Date: 20181004
  Receipt Date: 20181004
  Transmission Date: 20190204
  Serious: No
  Sender: FDA-Public Use
  Company Number: US-IPSEN BIOPHARMACEUTICALS, INC.-2018-14184

PATIENT
  Age: 50 Year
  Sex: Female

DRUGS (3)
  1. RESTYLANE LYFT [Suspect]
     Active Substance: HYALURONIC ACID
     Dosage: 1 ML
     Dates: start: 20180905, end: 20180905
  2. DYSPORT [Suspect]
     Active Substance: ABOBOTULINUMTOXINA
     Indication: SKIN WRINKLING
     Dosage: 10 UNITS (5 UNITS ON EACH SIDE) OF DYSPORT  (VIAL SIZE-300 UNITS) INJECTED
     Dates: start: 20180905, end: 20180905
  3. DYSPORT [Suspect]
     Active Substance: ABOBOTULINUMTOXINA
     Indication: OFF LABEL USE

REACTIONS (2)
  - Speech disorder [Not Recovered/Not Resolved]
  - Intentional product use issue [Unknown]

NARRATIVE: CASE EVENT DATE: 20180905
